FAERS Safety Report 4906109-8 (Version None)
Quarter: 2006Q1

REPORT INFORMATION
  Report Type: 
  Country: None (occurrence: None)
  Receive Date: 20060207
  Receipt Date: 20060207
  Transmission Date: 20060701
  Serious: Yes (Disabling)
  Sender: FDA-Public Use
  Company Number: None

PATIENT
  Age: 10 Year
  Sex: Male
  Weight: 35.3806 kg

DRUGS (2)
  1. CHILDREN'S MOTRIN [Suspect]
     Indication: HEADACHE
     Dosage: 300 MG EVERY 6-8 HOURS PO
     Route: 048
     Dates: start: 20051017, end: 20060202
  2. CHILDREN'S MOTRIN [Suspect]
     Indication: REBOUND EFFECT
     Dosage: 300 MG EVERY 6-8 HOURS PO
     Route: 048
     Dates: start: 20051017, end: 20060202

REACTIONS (4)
  - DRUG EFFECT DECREASED [None]
  - DRUG INEFFECTIVE [None]
  - HEADACHE [None]
  - REBOUND EFFECT [None]
